FAERS Safety Report 23991829 (Version 1)
Quarter: 2024Q2

REPORT INFORMATION
  Report Type: Spontaneous
  Country: US (occurrence: US)
  Receive Date: 20240619
  Receipt Date: 20240619
  Transmission Date: 20240715
  Serious: Yes (Other)
  Sender: FDA-Public Use
  Company Number: US-BRISTOL-MYERS SQUIBB COMPANY-2024-097773

PATIENT
  Age: 60 Year
  Sex: Male

DRUGS (11)
  1. POMALYST [Suspect]
     Active Substance: POMALIDOMIDE
     Indication: Plasma cell myeloma
     Dosage: FREQUENCY: 1 CAPSULE (1 MG) BY MOUTH DAILY ON DAYS 1 - 21 OF A 28-DAY CYCLE (3 WEEKS ON/1 WEEK OFF).
     Route: 048
     Dates: start: 20230721
  2. ASPIRIN [Concomitant]
     Active Substance: ASPIRIN
     Dosage: CHEW
  3. DEXAMETHASONE [Concomitant]
     Active Substance: DEXAMETHASONE
  4. ACYCLOVIR [Concomitant]
     Active Substance: ACYCLOVIR
  5. BASAGLAR [Concomitant]
     Active Substance: INSULIN GLARGINE
     Dosage: 100 UNIT
  6. HUMALOG [Concomitant]
     Active Substance: INSULIN LISPRO
     Dosage: 100/ML
  7. INSULIN NOS [Concomitant]
     Active Substance: INSULIN NOS
     Dosage: SYRG MIS 0.5/31G
  8. KYPROLIS [Concomitant]
     Active Substance: CARFILZOMIB
  9. KYPROLIS [Concomitant]
     Active Substance: CARFILZOMIB
  10. LEVOFLOXACIN [Concomitant]
     Active Substance: LEVOFLOXACIN
  11. LISINOPRIL [Concomitant]
     Active Substance: LISINOPRIL

REACTIONS (1)
  - Neuropathy peripheral [Not Recovered/Not Resolved]
